FAERS Safety Report 10468457 (Version 1)
Quarter: 2014Q3

REPORT INFORMATION
  Report Type: Spontaneous
  Country: US (occurrence: US)
  Receive Date: 20140922
  Receipt Date: 20140922
  Transmission Date: 20150326
  Serious: No
  Sender: FDA-Public Use
  Company Number: US-ALLERGAN-1315309US

PATIENT
  Age: 58 Year
  Sex: Female

DRUGS (2)
  1. OTC DROPS NOS [Concomitant]
     Indication: HYPERSENSITIVITY
  2. LASTACAFT [Suspect]
     Active Substance: ALCAFTADINE
     Indication: EYE ALLERGY
     Dosage: 2 GTT, UNK
     Route: 047
     Dates: start: 20130925, end: 20130925

REACTIONS (1)
  - Scleral hyperaemia [Not Recovered/Not Resolved]

NARRATIVE: CASE EVENT DATE: 20130925
